FAERS Safety Report 4823993-7 (Version None)
Quarter: 2005Q4

REPORT INFORMATION
  Report Type: 
  Country: None (occurrence: None)
  Receive Date: 20051109
  Receipt Date: 20051028
  Transmission Date: 20060501
  Serious: Yes (Hospitalization, Other)
  Sender: FDA-Public Use
  Company Number: US-JNJFOC-20051000738

PATIENT
  Sex: Female
  Weight: 65.32 kg

DRUGS (14)
  1. REMICADE [Suspect]
     Route: 042
  2. REMICADE [Suspect]
     Indication: RHEUMATOID ARTHRITIS
     Route: 042
  3. METHOTREXATE [Suspect]
  4. METHOTREXATE [Suspect]
     Indication: RHEUMATOID ARTHRITIS
  5. CHEMOTHERAPY [Suspect]
     Indication: DRUG USE FOR UNKNOWN INDICATION
  6. ZOCOR [Concomitant]
  7. OXYCODONE [Concomitant]
  8. DILTIAZEM HCL [Concomitant]
  9. PAXIL [Concomitant]
  10. ALLEGRA [Concomitant]
  11. LEVOXYL [Concomitant]
     Indication: THYROID DISORDER
  12. PREDNISONE [Concomitant]
  13. FOLIC ACID [Concomitant]
  14. PREMARIN [Concomitant]

REACTIONS (7)
  - CARDIOMYOPATHY [None]
  - CATARACT [None]
  - OESOPHAGEAL OPERATION [None]
  - PLEURAL EFFUSION [None]
  - RHEUMATOID ARTHRITIS [None]
  - SUPRAVENTRICULAR TACHYCARDIA [None]
  - WEIGHT DECREASED [None]
